FAERS Safety Report 12134362 (Version 1)
Quarter: 2016Q1

REPORT INFORMATION
  Report Type: Spontaneous
  Country: US (occurrence: US)
  Receive Date: 20160301
  Receipt Date: 20160301
  Transmission Date: 20160526
  Serious: Yes (Other)
  Sender: FDA-Public Use
  Company Number: US-TURING PHARMACEUTICALS-2015TNG00063

PATIENT

DRUGS (1)
  1. PYRIMETHAMINE [Suspect]
     Active Substance: PYRIMETHAMINE
     Dosage: UNK

REACTIONS (1)
  - Neutropenia [Unknown]
